FAERS Safety Report 8069980-X (Version None)
Quarter: 2012Q1

REPORT INFORMATION
  Report Type: 
  Country: None (occurrence: None)
  Receive Date: 20120125
  Receipt Date: 20120119
  Transmission Date: 20120608
  Serious: Yes (Hospitalization)
  Sender: FDA-Public Use
  Company Number: DE-SANOFI-AVENTIS-2012SA004110

PATIENT
  Sex: Male

DRUGS (6)
  1. METOPROLOL TARTRATE [Concomitant]
     Route: 048
  2. VALSARTAN [Concomitant]
     Route: 048
  3. LERCANIDIPINE [Concomitant]
     Route: 048
  4. DOCETAXEL [Suspect]
     Indication: HYPOPHARYNGEAL CANCER
     Route: 041
     Dates: start: 20120104, end: 20120104
  5. LEVOTHYROXINE SODIUM [Concomitant]
     Route: 048
  6. CETUXIMAB [Suspect]
     Indication: HYPOPHARYNGEAL CANCER
     Route: 041
     Dates: start: 20120104, end: 20120104

REACTIONS (4)
  - HYPOKALAEMIA [None]
  - BLOOD CREATININE INCREASED [None]
  - NEUTROPENIA [None]
  - DIARRHOEA [None]
